FAERS Safety Report 8190266-7 (Version None)
Quarter: 2012Q1

REPORT INFORMATION
  Report Type: 
  Country: None (occurrence: None)
  Receive Date: 20120307
  Receipt Date: 20120222
  Transmission Date: 20120608
  Serious: Yes (Other)
  Sender: FDA-Public Use
  Company Number: IT-MYLANLABS-2012S1004393

PATIENT
  Age: 6 Decade
  Sex: Male

DRUGS (3)
  1. CYCLOPHOSPHAMIDE [Suspect]
     Indication: NON-HODGKIN'S LYMPHOMA
     Dosage: FCR REGIMEN, TOTAL 6 CYCLES
     Route: 065
     Dates: start: 20080601, end: 20081101
  2. RITUXIMAB [Suspect]
     Indication: NON-HODGKIN'S LYMPHOMA
     Dosage: FCR REGIMEN, TOTAL 6 CYCLES
     Route: 065
     Dates: start: 20080601, end: 20081101
  3. FLUDARABINE PHOSPHATE [Suspect]
     Indication: NON-HODGKIN'S LYMPHOMA
     Dosage: FCR REGIMEN, TOTAL 6 CYCLES
     Route: 065
     Dates: start: 20080601, end: 20081101

REACTIONS (3)
  - CYTOGENETIC ABNORMALITY [None]
  - MYELODYSPLASTIC SYNDROME [None]
  - PANCYTOPENIA [None]
